FAERS Safety Report 5840547-4 (Version None)
Quarter: 2008Q3

REPORT INFORMATION
  Report Type: 
  Country: None (occurrence: None)
  Receive Date: 20080807
  Receipt Date: 20080807
  Transmission Date: 20090109
  Serious: Yes (Other)
  Sender: FDA-Public Use
  Company Number: None

PATIENT
  Age: 41 Year
  Sex: Female
  Weight: 60.782 kg

DRUGS (1)
  1. JANUVIA [Suspect]
     Indication: DIABETES MELLITUS
     Dosage: ONE DAILY PO
     Route: 048
     Dates: start: 20080610, end: 20080717

REACTIONS (6)
  - ERYTHEMA [None]
  - ERYTHEMA NODOSUM [None]
  - NODULE [None]
  - PAIN [None]
  - RASH [None]
  - SKIN WARM [None]
